FAERS Safety Report 23842790 (Version 2)
Quarter: 2024Q3

REPORT INFORMATION
  Report Type: Spontaneous
  Country: CA (occurrence: CA)
  Receive Date: 20240510
  Receipt Date: 20240822
  Transmission Date: 20241017
  Serious: Yes (Life-Threatening, Other)
  Sender: BAXTER
  Company Number: CA-BAXTER-2024BAX017962

PATIENT
  Age: 14 Year
  Sex: Male

DRUGS (22)
  1. TISSEEL [Suspect]
     Active Substance: FIBRINOGEN HUMAN\THROMBIN HUMAN
     Indication: Surgery
     Dosage: 1.0 DOSAGE FORMS, AS REQUIRED, DOSAGE FORM: KIT
     Route: 061
  2. TISSEEL [Suspect]
     Active Substance: FIBRINOGEN HUMAN\THROMBIN HUMAN
     Indication: Scoliosis surgery
     Dosage: 10 ML (DOSAGE FORM: NOT SPECIFIED) (THERAPY DURATION: 60 SECONDS)
     Route: 042
  3. ALBUREX [Suspect]
     Active Substance: ALBUMIN HUMAN
     Indication: Surgery
     Dosage: 500.0 ML, AS REQUIRED, DOSAGE FORM: SOLUTION INTRAVENOUS
     Route: 041
  4. ALBUREX [Suspect]
     Active Substance: ALBUMIN HUMAN
     Indication: Scoliosis surgery
  5. THROMBIN [Suspect]
     Active Substance: THROMBIN
     Indication: Surgery
     Dosage: 1.0 DOSAGE FORMS, AS REQUIRED
     Route: 061
  6. THROMBIN [Suspect]
     Active Substance: THROMBIN
     Indication: Scoliosis surgery
  7. ALBUREX [Suspect]
     Active Substance: ALBUMIN HUMAN
     Indication: Procedural haemorrhage
     Dosage: 500 ML AT AN UNSPECIFIED FREQUENCY (THERAPY DURATION : 30 MINUTES) (DOSAGE FORM : SOLUTION INTRAVENO
     Route: 042
  8. ALBUREX [Suspect]
     Active Substance: ALBUMIN HUMAN
     Dosage: (THERAPY DURATION : 64 MINUTES) (DOSAGE FORM : SOLUTION INTRAVENOUS)
     Route: 042
  9. ALBUREX [Suspect]
     Active Substance: ALBUMIN HUMAN
     Dosage: (THERAPY DURATION : 40 MINUTES) (DOSAGE FORM : SOLUTION INTRAVENOUS)
     Route: 042
  10. ANCEF [Concomitant]
     Active Substance: CEFAZOLIN SODIUM
     Dosage: DOSAGE FORM: POWDER FOR SOLUTION INTRAMUSCULAR
     Route: 065
  11. CRYOPRECIPITATED ANTIHEMOPHILIC FACTOR (HUMAN) [Concomitant]
     Active Substance: CRYOPRECIPITATED ANTIHEMOPHILIC FACTOR (HUMAN)
     Dosage: DOSAGE FORM: NOT SPECIFIED
     Route: 065
  12. DDAVP [Concomitant]
     Active Substance: DESMOPRESSIN ACETATE
     Dosage: DOSAGE FORM: NOT SPECIFIED
     Route: 065
  13. DECADRON [Concomitant]
     Active Substance: DEXAMETHASONE
     Dosage: DOSAGE FORM: NOT SPECIFIED
     Route: 065
  14. KETAMINE [Concomitant]
     Active Substance: KETAMINE
     Dosage: DOSAGE FORM: NOT SPECIFIED
     Route: 065
  15. LEVOPHED [Concomitant]
     Active Substance: NOREPINEPHRINE BITARTRATE
     Dosage: DOSAGE FORM: SOLUTION INTRAVENOUS
     Route: 065
  16. PROPOFOL [Concomitant]
     Active Substance: PROPOFOL
     Dosage: DOSAGE FORM: NOT SPECIFIED
     Route: 065
  17. ROCURONIUM [Concomitant]
     Active Substance: ROCURONIUM BROMIDE
     Dosage: DOSAGE FORM: NOT SPECIFIED
     Route: 065
  18. SUFENTANIL [Concomitant]
     Active Substance: SUFENTANIL
     Dosage: DOSAGE FORM: NOT SPECIFIED
     Route: 065
  19. TRANDATE [Concomitant]
     Active Substance: LABETALOL HYDROCHLORIDE
     Dosage: DOSAGE FORM: NOT SPECIFIED
     Route: 065
  20. TRANEXAMIC ACID [Concomitant]
     Active Substance: TRANEXAMIC ACID
     Dosage: DOSAGE FORM: NOT SPECIFIED
     Route: 065
  21. CEFAZOLIN [Concomitant]
     Active Substance: CEFAZOLIN
     Route: 065
  22. DESMOPRESSIN [Concomitant]
     Active Substance: DESMOPRESSIN
     Dosage: (DOSAGE FORM : NOT SPECIFIED)
     Route: 065

REACTIONS (32)
  - Allergic transfusion reaction [Recovered/Resolved]
  - Rash [Recovered/Resolved]
  - Atelectasis [Recovered/Resolved]
  - Back pain [Recovered/Resolved]
  - Cardiomegaly [Recovered/Resolved]
  - Disease progression [Recovered/Resolved]
  - Emphysema [Recovered/Resolved]
  - Epistaxis [Recovered/Resolved]
  - Face oedema [Recovered/Resolved]
  - Flatulence [Recovered/Resolved]
  - Haemodynamic instability [Recovered/Resolved]
  - Haemorrhage [Recovered/Resolved]
  - Haemothorax [Recovered/Resolved]
  - Hypervolaemia [Recovered/Resolved]
  - Hypovolaemia [Recovered/Resolved]
  - Inspiratory capacity decreased [Recovered/Resolved]
  - Lung opacity [Recovered/Resolved]
  - Pleural effusion [Recovered/Resolved]
  - Pneumothorax [Recovered/Resolved]
  - Procedural haemorrhage [Recovered/Resolved]
  - Shock [Recovered/Resolved]
  - Shock haemorrhagic [Recovered/Resolved]
  - Transfusion reaction [Recovered/Resolved]
  - Urticaria [Recovered/Resolved]
  - Tachycardia [Recovered/Resolved]
  - Bronchospasm [Recovered/Resolved]
  - Heart rate increased [Recovered/Resolved]
  - Hypersensitivity [Recovered/Resolved]
  - Hypotension [Recovered/Resolved]
  - Anaphylactic shock [Recovered/Resolved]
  - Anaphylactic reaction [Recovered/Resolved]
  - Blood pressure decreased [Recovered/Resolved]
